FAERS Safety Report 12578071 (Version 1)
Quarter: 2016Q3

REPORT INFORMATION
  Report Type: Report from Study
  Country: US (occurrence: US)
  Receive Date: 20160721
  Receipt Date: 20160721
  Transmission Date: 20161109
  Serious: Yes (Death)
  Sender: FDA-Public Use
  Company Number: US-ASTRAZENECA-2016SE16573

PATIENT
  Age: 751 Month
  Sex: Female

DRUGS (4)
  1. AMITRIPYLINE [Concomitant]
  2. OXYGEN. [Concomitant]
     Active Substance: OXYGEN
  3. RISEDRONATE [Concomitant]
     Active Substance: RISEDRONATE SODIUM
  4. TAGRISSO [Suspect]
     Active Substance: OSIMERTINIB
     Indication: LUNG CARCINOMA CELL TYPE UNSPECIFIED STAGE 0
     Route: 048
     Dates: start: 20160124

REACTIONS (8)
  - Vomiting [Unknown]
  - Nausea [Unknown]
  - Lip disorder [Recovered/Resolved]
  - Death [Fatal]
  - Cheilitis [Recovering/Resolving]
  - Diarrhoea [Unknown]
  - Malaise [Unknown]
  - Intentional product misuse [Unknown]

NARRATIVE: CASE EVENT DATE: 201602
